FAERS Safety Report 12867105 (Version 1)
Quarter: 2016Q4

REPORT INFORMATION
  Report Type: Spontaneous
  Country: US (occurrence: US)
  Receive Date: 20161020
  Receipt Date: 20161020
  Transmission Date: 20170207
  Serious: No
  Sender: FDA-Public Use
  Company Number: US-JAZZ-2016-US-014862

PATIENT
  Sex: Female
  Weight: 62.22 kg

DRUGS (19)
  1. XYREM [Suspect]
     Active Substance: SODIUM OXYBATE
     Indication: NARCOLEPSY
     Dosage: 2.25 G, BID
     Route: 048
     Dates: start: 201502, end: 201502
  2. BACLOFEN. [Concomitant]
     Active Substance: BACLOFEN
  3. NUVIGIL [Concomitant]
     Active Substance: ARMODAFINIL
  4. TOPAMAX [Concomitant]
     Active Substance: TOPIRAMATE
  5. VITAMIN B12 [Concomitant]
     Active Substance: CYANOCOBALAMIN
  6. LYRICA [Concomitant]
     Active Substance: PREGABALIN
  7. WELLBUTRIN SR [Concomitant]
     Active Substance: BUPROPION HYDROCHLORIDE
  8. MAXALT-MLT [Concomitant]
     Active Substance: RIZATRIPTAN BENZOATE
  9. VIIBRYD [Concomitant]
     Active Substance: VILAZODONE HYDROCHLORIDE
  10. XYREM [Suspect]
     Active Substance: SODIUM OXYBATE
     Dosage: DOSE ADJUSTMENTS
     Route: 048
     Dates: start: 201502
  11. XYREM [Suspect]
     Active Substance: SODIUM OXYBATE
     Dosage: 3 G, QD
     Route: 048
  12. ZOFRAN [Concomitant]
     Active Substance: ONDANSETRON HYDROCHLORIDE
  13. CAMBIA [Concomitant]
     Active Substance: DICLOFENAC POTASSIUM
  14. ATIVAN [Concomitant]
     Active Substance: LORAZEPAM
  15. RITALIN LA [Concomitant]
     Active Substance: METHYLPHENIDATE HYDROCHLORIDE
  16. RITALIN [Concomitant]
     Active Substance: METHYLPHENIDATE HYDROCHLORIDE
  17. BRINTELLIX [Concomitant]
     Active Substance: VORTIOXETINE HYDROBROMIDE
  18. ZOLOFT [Concomitant]
     Active Substance: SERTRALINE HYDROCHLORIDE
  19. CELEBREX [Concomitant]
     Active Substance: CELECOXIB

REACTIONS (8)
  - Alopecia [Unknown]
  - Abnormal dreams [Unknown]
  - Therapeutic response decreased [Unknown]
  - Hangover [Unknown]
  - Influenza like illness [Recovering/Resolving]
  - Tooth disorder [Unknown]
  - Disturbance in attention [Unknown]
  - Depressed mood [Unknown]
